FAERS Safety Report 19748117 (Version 2)
Quarter: 2021Q4

REPORT INFORMATION
  Report Type: Report from Study
  Country: US (occurrence: US)
  Receive Date: 20210825
  Receipt Date: 20211001
  Transmission Date: 20220304
  Serious: No
  Sender: FDA-Public Use
  Company Number: US-SUNOVION-2021SUN003306

PATIENT
  Age: 60 Year
  Sex: Male

DRUGS (3)
  1. KYNMOBI [Suspect]
     Active Substance: APOMORPHINE HYDROCHLORIDE
     Dosage: 20 MG
     Route: 060
     Dates: start: 20210512
  2. KYNMOBI [Suspect]
     Active Substance: APOMORPHINE HYDROCHLORIDE
     Dosage: 25 MG, 5 TIMES PER DAY
     Route: 060
  3. KYNMOBI [Suspect]
     Active Substance: APOMORPHINE HYDROCHLORIDE
     Dosage: 25 MG DECREASED THE FREQUENCY
     Route: 060

REACTIONS (8)
  - Oral discomfort [Unknown]
  - Glossitis [Unknown]
  - Tooth disorder [Unknown]
  - Mouth swelling [Unknown]
  - Swollen tongue [Unknown]
  - Lip swelling [Unknown]
  - Hypoaesthesia oral [Unknown]
  - Oral pain [Unknown]

NARRATIVE: CASE EVENT DATE: 20210916
